FAERS Safety Report 10706094 (Version 5)
Quarter: 2015Q3

REPORT INFORMATION
  Report Type: Report from Study
  Country: US (occurrence: US)
  Receive Date: 20150113
  Receipt Date: 20150812
  Transmission Date: 20151125
  Serious: Yes (Hospitalization)
  Sender: FDA-Public Use
  Company Number: US-BIOGENIDEC-2014BI135231

PATIENT
  Age: 48 Year
  Sex: Female

DRUGS (2)
  1. AVONEX [Suspect]
     Active Substance: INTERFERON BETA-1A
     Indication: MULTIPLE SCLEROSIS
     Route: 030
     Dates: start: 20100317, end: 20141001
  2. AVONEX [Suspect]
     Active Substance: INTERFERON BETA-1A
     Indication: MULTIPLE SCLEROSIS
     Route: 030
     Dates: start: 19970101, end: 20091102

REACTIONS (9)
  - Ligament sprain [Recovered/Resolved]
  - Gastric disorder [Unknown]
  - Depressed mood [Recovered/Resolved]
  - Osteoarthritis [Recovered/Resolved]
  - Depression [Unknown]
  - Influenza like illness [Recovered/Resolved]
  - Fatigue [Recovered/Resolved]
  - Lethargy [Recovered/Resolved]
  - Ligament rupture [Recovered/Resolved]

NARRATIVE: CASE EVENT DATE: 19970101
